FAERS Safety Report 6148597-8 (Version None)
Quarter: 2009Q2

REPORT INFORMATION
  Report Type: 
  Country: None (occurrence: None)
  Receive Date: 20090408
  Receipt Date: 20090327
  Transmission Date: 20091009
  Serious: Yes (Life-Threatening, Hospitalization)
  Sender: FDA-Public Use
  Company Number: DE-ELI_LILLY_AND_COMPANY-DE200902005119

PATIENT
  Age: 58 Year
  Sex: Female
  Weight: 55 kg

DRUGS (3)
  1. CYMBALTA [Suspect]
     Indication: BIPOLAR I DISORDER
     Dosage: 60 MG, DAILY (1/D)
     Route: 048
     Dates: start: 20081202, end: 20081228
  2. ERGENYL [Concomitant]
     Indication: EPILEPSY
     Dosage: UNK, UNKNOWN
     Route: 065
  3. ATACAND [Concomitant]
     Indication: HYPERTENSION
     Dosage: UNK, UNKNOWN
     Route: 065

REACTIONS (1)
  - ACUTE HEPATIC FAILURE [None]
